FAERS Safety Report 13591460 (Version 1)
Quarter: 2017Q2

REPORT INFORMATION
  Report Type: Spontaneous
  Country: US (occurrence: US)
  Receive Date: 20170530
  Receipt Date: 20170530
  Transmission Date: 20170830
  Serious: Yes (Hospitalization, Other)
  Sender: FDA-Public Use
  Company Number: US-PFIZER INC-9812408

PATIENT
  Age: 31 Month
  Sex: Male
  Weight: 11.9 kg

DRUGS (9)
  1. LASIX [Concomitant]
     Active Substance: FUROSEMIDE
     Dosage: 15 MG, DAILY
     Route: 048
  2. CHLOROTHIAZIDE. [Concomitant]
     Active Substance: CHLOROTHIAZIDE
     Dosage: UNK
     Route: 065
  3. POTASSIUM CHLORIDE. [Concomitant]
     Active Substance: POTASSIUM CHLORIDE
     Dosage: 10 MEQ, DAILY
     Route: 048
  4. DIGOXIN. [Interacting]
     Active Substance: DIGOXIN
     Indication: ILL-DEFINED DISORDER
     Dosage: 60 UG, 2X/DAY
     Route: 048
     Dates: start: 19980410, end: 19980427
  5. DIGOXIN. [Interacting]
     Active Substance: DIGOXIN
     Dosage: 50 UG, 2X/DAY
     Route: 048
  6. SALBUTAMOL SULFATE [Concomitant]
     Active Substance: ALBUTEROL SULFATE
     Dosage: UNK
     Route: 065
  7. ZITHROMAX [Suspect]
     Active Substance: AZITHROMYCIN DIHYDRATE
     Dosage: 10 MG/KG, UNK
     Dates: start: 19980424, end: 19980424
  8. ZITHROMAX [Interacting]
     Active Substance: AZITHROMYCIN DIHYDRATE
     Dosage: 5 MG/KG, DAILY
     Route: 048
     Dates: start: 19980425, end: 19980428
  9. CALAMINE LOTION PHENOLATED [Concomitant]
     Dosage: UNK
     Route: 061

REACTIONS (7)
  - Toxicity to various agents [Recovered/Resolved]
  - Decreased appetite [Unknown]
  - Diarrhoea [Unknown]
  - Supraventricular extrasystoles [Recovered/Resolved]
  - Drug interaction [Recovered/Resolved]
  - Sinus arrest [Recovered/Resolved]
  - Atrioventricular block second degree [Recovered/Resolved]

NARRATIVE: CASE EVENT DATE: 19980425
